FAERS Safety Report 5939979-5 (Version None)
Quarter: 2008Q4

REPORT INFORMATION
  Report Type: 
  Country: None (occurrence: None)
  Receive Date: 20081104
  Receipt Date: 20081024
  Transmission Date: 20090506
  Serious: Yes (Other)
  Sender: FDA-Public Use
  Company Number: FR-JNJFOC-20081005729

PATIENT
  Age: 26 Year
  Sex: Male

DRUGS (3)
  1. TOPIRAMATE [Suspect]
     Route: 048
     Dates: start: 20081023, end: 20081024
  2. TOPIRAMATE [Suspect]
     Indication: DRUG DISPENSING ERROR
     Route: 048
     Dates: start: 20081023, end: 20081024
  3. ZITHROMAX [Suspect]
     Indication: DRUG USE FOR UNKNOWN INDICATION
     Route: 048

REACTIONS (3)
  - DRUG DISPENSING ERROR [None]
  - MEDICATION ERROR [None]
  - VERTIGO [None]
